FAERS Safety Report 26006028 (Version 1)
Quarter: 2025Q4

REPORT INFORMATION
  Report Type: Report from Study
  Country: EU (occurrence: EU)
  Receive Date: 20251106
  Receipt Date: 20251106
  Transmission Date: 20260118
  Serious: Yes (Congenital Anomaly, Other)
  Sender: TAKEDA
  Company Number: EU-ABBVIE-6517715

PATIENT

DRUGS (2)
  1. VEDOLIZUMAB [Suspect]
     Active Substance: VEDOLIZUMAB
     Indication: Maternal exposure timing unspecified
     Dosage: UNK
     Route: 064
  2. MESALAMINE [Suspect]
     Active Substance: MESALAMINE
     Indication: Maternal exposure timing unspecified
     Dosage: UNK
     Route: 064

REACTIONS (2)
  - Congenital pulmonary airway malformation [Unknown]
  - Foetal exposure during pregnancy [Unknown]
